FAERS Safety Report 8320827-3 (Version None)
Quarter: 2012Q2

REPORT INFORMATION
  Report Type: 
  Country: None (occurrence: None)
  Receive Date: 20120430
  Receipt Date: 20120420
  Transmission Date: 20120825
  Serious: Yes (Hospitalization, Other)
  Sender: FDA-Public Use
  Company Number: PHMT2007CA01366

PATIENT
  Sex: Female

DRUGS (4)
  1. SANDOSTATIN LAR [Suspect]
     Indication: PANCREATIC CARCINOMA
     Dosage: 30 MG, EVERY 3 WEEKS
     Route: 030
     Dates: start: 20060626
  2. STEROIDS NOS [Concomitant]
     Dosage: UNK UKN, UNK
  3. OXYCET [Concomitant]
     Dosage: UNK UKN, UNK
  4. SIMVASTATIN [Concomitant]
     Indication: PAIN
     Dosage: UNK UKN, UNK

REACTIONS (29)
  - BACK PAIN [None]
  - ABDOMINAL PAIN UPPER [None]
  - PAIN [None]
  - THIRST [None]
  - THROMBOSIS [None]
  - HEADACHE [None]
  - MALAISE [None]
  - DEHYDRATION [None]
  - EATING DISORDER [None]
  - DIARRHOEA [None]
  - ASTHENIA [None]
  - PANCREATIC CARCINOMA RECURRENT [None]
  - CONDITION AGGRAVATED [None]
  - DEPRESSION [None]
  - ANXIETY [None]
  - PYREXIA [None]
  - HYPERHIDROSIS [None]
  - RETCHING [None]
  - PANCREATITIS [None]
  - NEOPLASM PROGRESSION [None]
  - INSOMNIA [None]
  - ABASIA [None]
  - DECREASED APPETITE [None]
  - PANCREATIC DISORDER [None]
  - MAMMOGRAM ABNORMAL [None]
  - URINARY TRACT INFECTION [None]
  - NAUSEA [None]
  - WEIGHT DECREASED [None]
  - VOMITING [None]
